FAERS Safety Report 12558185 (Version 1)
Quarter: 2016Q3

REPORT INFORMATION
  Report Type: Spontaneous
  Country: US (occurrence: US)
  Receive Date: 20160714
  Receipt Date: 20160714
  Transmission Date: 20161109
  Serious: No
  Sender: FDA-Public Use
  Company Number: US-GLAXOSMITHKLINE-US2016094695

PATIENT
  Age: 65 Year
  Sex: Male

DRUGS (14)
  1. NIFEDIPINE. [Concomitant]
     Active Substance: NIFEDIPINE
  2. ADVAIR DISKUS [Suspect]
     Active Substance: FLUTICASONE PROPIONATE\SALMETEROL XINAFOATE
     Indication: CHRONIC OBSTRUCTIVE PULMONARY DISEASE
  3. FINASTERIDE. [Concomitant]
     Active Substance: FINASTERIDE
  4. METOPROLOL. [Concomitant]
     Active Substance: METOPROLOL
  5. OMEPRAZOLE. [Concomitant]
     Active Substance: OMEPRAZOLE
  6. ALFUZOSIN [Concomitant]
     Active Substance: ALFUZOSIN
  7. MYCOPHENOLATE MOFETIL. [Concomitant]
     Active Substance: MYCOPHENOLATE MOFETIL
  8. SIMVASTATIN. [Concomitant]
     Active Substance: SIMVASTATIN
  9. ASA [Concomitant]
     Active Substance: ASPIRIN
  10. PREDNISONE. [Concomitant]
     Active Substance: PREDNISONE
  11. DOCUSATE [Concomitant]
     Active Substance: DOCUSATE
  12. OXYBUTYNIN [Concomitant]
     Active Substance: OXYBUTYNIN
  13. TACROLIMUS. [Concomitant]
     Active Substance: TACROLIMUS
  14. ADVAIR DISKUS [Suspect]
     Active Substance: FLUTICASONE PROPIONATE\SALMETEROL XINAFOATE
     Indication: ASTHMA
     Dosage: 1 PUFF(S), BID
     Route: 055
     Dates: start: 201606

REACTIONS (3)
  - Angular cheilitis [Unknown]
  - Chapped lips [Unknown]
  - Lip disorder [Unknown]

NARRATIVE: CASE EVENT DATE: 201606
